FAERS Safety Report 8466114-4 (Version None)
Quarter: 2012Q2

REPORT INFORMATION
  Report Type: 
  Country: None (occurrence: None)
  Receive Date: 20120620
  Receipt Date: 20120620
  Transmission Date: 20120825
  Serious: Yes (Other)
  Sender: FDA-Public Use
  Company Number: None

PATIENT
  Sex: Female

DRUGS (26)
  1. DONEPEZIL HCL [Concomitant]
  2. LEZORPAN [Concomitant]
  3. LEXIN [Concomitant]
  4. ICALENDRANATE [Concomitant]
  5. LISINOPRIL [Concomitant]
  6. TIRAHEXYPHENIPYL [Concomitant]
  7. ASPIRIN [Concomitant]
  8. ICATORVASTATIN [Concomitant]
  9. ATAIN [Concomitant]
  10. STERTIRALINE [Concomitant]
  11. OXYBUTYNININ [Concomitant]
  12. OLANZAPENE [Concomitant]
  13. ICDOCUSATSODIUM [Concomitant]
  14. NEXIUM [Concomitant]
  15. RESPERADOL [Concomitant]
  16. GULLETT [Concomitant]
  17. NITROGLYCERIN [Suspect]
     Indication: CORONARY ARTERY DISEASE
     Dosage: TRANSDERMAL
     Route: 062
  18. OLANZAPINE [Suspect]
     Indication: MENTAL DISORDER
     Dosage: 10MG ONCE A DAY PO
     Route: 048
  19. SERTRALINE HYDROCHLORIDE [Concomitant]
  20. ACTAND [Concomitant]
  21. RANIPIDINE [Concomitant]
  22. SERTIRALINE [Concomitant]
  23. LORATADINE [Concomitant]
  24. SOFOSAMAX [Concomitant]
  25. ARICEPT [Concomitant]
  26. LOXYBUTYNIN [Concomitant]

REACTIONS (4)
  - HYPERSENSITIVITY [None]
  - CHEST PAIN [None]
  - URTICARIA [None]
  - PRURITUS [None]
